FAERS Safety Report 6626898-4 (Version None)
Quarter: 2010Q1

REPORT INFORMATION
  Report Type: 
  Country: None (occurrence: None)
  Receive Date: 20100308
  Receipt Date: 20100224
  Transmission Date: 20100710
  Serious: Yes (Disabling, Other)
  Sender: FDA-Public Use
  Company Number: 2010AP000384

PATIENT
  Age: 93 Year
  Sex: Female

DRUGS (6)
  1. ALENDRONATE SODIUM [Suspect]
     Indication: OSTEOPOROSIS
     Dosage: 70 MG; PO; QW
     Route: 048
     Dates: start: 20091001, end: 20100101
  2. ASPIRIN [Concomitant]
  3. CALCIUM PHOSPHATE (CALCIUM PHOSPHATE) [Concomitant]
  4. COLECALCIFEROL (COLECALCIFEROL) [Concomitant]
  5. OMEPRAZOLE [Concomitant]
  6. VERAPAMIL HYDROCHLORIDE [Concomitant]

REACTIONS (4)
  - DECREASED APPETITE [None]
  - DYSPHAGIA [None]
  - MOUTH ULCERATION [None]
  - WEIGHT DECREASED [None]
